FAERS Safety Report 16759637 (Version 1)
Quarter: 2019Q3

REPORT INFORMATION
  Report Type: Spontaneous
  Country: GB (occurrence: GB)
  Receive Date: 20190830
  Receipt Date: 20190830
  Transmission Date: 20191005
  Serious: Yes (Hospitalization, Other)
  Sender: FDA-Public Use
  Company Number: GB-PFIZER INC-2019366617

PATIENT
  Age: 69 Year
  Sex: Female

DRUGS (18)
  1. VENLAFAXINE HCL [Suspect]
     Active Substance: VENLAFAXINE HYDROCHLORIDE
     Dosage: 37.5 MG, IN THE MORNING
     Route: 048
  2. PIOGLITAZONE. [Suspect]
     Active Substance: PIOGLITAZONE
     Dosage: 30 MG, 1X/DAY IN THE MORNING
     Route: 048
  3. FOLIC ACID. [Concomitant]
     Active Substance: FOLIC ACID
     Dosage: 5 MG, IN THE MORNING
     Route: 048
  4. MORPHINE [Concomitant]
     Active Substance: MORPHINE
     Dosage: 30 MG, IN THE MORNING
     Route: 048
  5. DICLOFENAC [Concomitant]
     Active Substance: DICLOFENAC
     Dosage: 1 DF, APPLY THREE TIMES PER DAY AS NEEDED
     Route: 061
  6. ATORVASTATIN CALCIUM. [Suspect]
     Active Substance: ATORVASTATIN CALCIUM
     Dosage: 40 MG, AT NIGHT
     Route: 048
  7. COMBODART [Concomitant]
     Active Substance: DUTASTERIDE\TAMSULOSIN
     Dosage: 1 DF (400 UG/500 UG), IN THE MORNING
     Route: 048
  8. EMPAGLIFLOZIN [Concomitant]
     Active Substance: EMPAGLIFLOZIN
     Dosage: 25 MG, IN THE MORNING
     Route: 048
  9. OMEPRAZOLE. [Concomitant]
     Active Substance: OMEPRAZOLE
     Dosage: 20 MG, IN THE MORNING
     Route: 048
  10. METFORMIN [Concomitant]
     Active Substance: METFORMIN HYDROCHLORIDE
     Dosage: 2 G, IN MORNING
     Route: 048
  11. GLYCERYL TRINITRATE [Concomitant]
     Active Substance: NITROGLYCERIN
     Dosage: 400 UG, AS NEEDED
     Route: 060
  12. SALBUTAMOL [Concomitant]
     Active Substance: ALBUTEROL
     Dosage: 200 UG, AS NEEDED (PUFFS)
     Route: 050
  13. RIVAROXABAN [Concomitant]
     Active Substance: RIVAROXABAN
     Dosage: 20 MG, IN THE MORNING
     Route: 048
  14. BISOPROLOL [Concomitant]
     Active Substance: BISOPROLOL
     Dosage: 10 MG, IN THE MORNING
     Route: 048
  15. AMLODIPINE [Concomitant]
     Active Substance: AMLODIPINE BESYLATE
     Dosage: 10 MG, IN THE MORNING
     Route: 048
  16. QUINIDINE SULFATE. [Concomitant]
     Active Substance: QUINIDINE SULFATE
     Dosage: 200 MG, IN THE MORNING
     Route: 048
  17. BUDESONIDE/FORMOTEROL FUMARATE [Concomitant]
     Dosage: 4 PUFFS, 1X/DAY (200 UG/DOSE / FORMOTEROL 6 UG/DOSE)
     Route: 055
  18. IMIPRAMINE [Suspect]
     Active Substance: IMIPRAMINE
     Dosage: 20 MG, ONCE IN THE MORNING AND ONCE AT NIGHT
     Route: 048

REACTIONS (4)
  - Left ventricular dysfunction [Not Recovered/Not Resolved]
  - Dyspnoea [Unknown]
  - Interstitial lung disease [Recovering/Resolving]
  - Pneumonia streptococcal [Unknown]

NARRATIVE: CASE EVENT DATE: 20190416
